FAERS Safety Report 9638765 (Version 2)
Quarter: 2013Q4

REPORT INFORMATION
  Report Type: Spontaneous
  Country: US (occurrence: US)
  Receive Date: 20131022
  Receipt Date: 20131022
  Transmission Date: 20140711
  Serious: No
  Sender: FDA-Public Use
  Company Number: US-BRISTOL-MYERS SQUIBB COMPANY-19202787

PATIENT
  Age: 65 Year
  Sex: Male
  Weight: 95.24 kg

DRUGS (5)
  1. ELIQUIS [Suspect]
     Indication: ATRIAL FIBRILLATION
     Dates: start: 201307
  2. METOPROLOL [Suspect]
     Dosage: 1/2 OF A 50MG TABLET WAS CUT DOWN TO 1/2 OF A 25MG TABLET
  3. HYDROCHLOROTHIAZIDE [Concomitant]
  4. ASPIRIN [Concomitant]
  5. PRAVASTATIN SODIUM [Concomitant]

REACTIONS (2)
  - Asthenia [Recovering/Resolving]
  - Headache [Recovering/Resolving]
